FAERS Safety Report 7324307-3 (Version None)
Quarter: 2011Q1

REPORT INFORMATION
  Report Type: 
  Country: None (occurrence: None)
  Receive Date: 20110301
  Receipt Date: 20110222
  Transmission Date: 20110831
  Serious: Yes (Hospitalization)
  Sender: FDA-Public Use
  Company Number: NL-MEDIMMUNE-MEDI-0012696

PATIENT
  Sex: Female
  Weight: 2.4 kg

DRUGS (2)
  1. SYNAGIS [Suspect]
     Route: 030
     Dates: start: 20110119, end: 20110119
  2. SYNAGIS [Suspect]
     Route: 030

REACTIONS (1)
  - HYPOVENTILATION [None]
